FAERS Safety Report 12543820 (Version 1)
Quarter: 2016Q3

REPORT INFORMATION
  Report Type: Spontaneous
  Country: US (occurrence: None)
  Receive Date: 20160708
  Receipt Date: 20160708
  Transmission Date: 20161109
  Serious: No
  Sender: FDA-Public Use
  Company Number: None

PATIENT
  Age: 48 Year
  Sex: Female
  Weight: 83.46 kg

DRUGS (5)
  1. OSPHENA FOR ESTROGEN [Concomitant]
  2. BABY ASPRIN [Concomitant]
     Active Substance: ASPIRIN
  3. WOMEN^S ONE A DAY VITAMIN [Concomitant]
  4. CALCIUM [Concomitant]
     Active Substance: CALCIUM
  5. PREMARIN [Suspect]
     Active Substance: ESTROGENS, CONJUGATED
     Indication: PROPHYLAXIS
     Route: 067
     Dates: start: 20160503, end: 20160606

REACTIONS (6)
  - Bone pain [None]
  - Hypoaesthesia [None]
  - Pain of skin [None]
  - Erythema [None]
  - Pruritus [None]
  - Acne [None]

NARRATIVE: CASE EVENT DATE: 20160505
